FAERS Safety Report 9669704 (Version 1)
Quarter: 2013Q4

REPORT INFORMATION
  Report Type: Report from Study
  Country: CO (occurrence: CO)
  Receive Date: 20131105
  Receipt Date: 20131105
  Transmission Date: 20140711
  Serious: Yes (Death)
  Sender: FDA-Public Use
  Company Number: CO-INCYTE CORPORATION-2013IN002565

PATIENT
  Age: 71 Year
  Sex: Male

DRUGS (1)
  1. JAKAVI [Suspect]
     Dosage: 20 MG, BID
     Route: 048
     Dates: start: 20130810, end: 20130925

REACTIONS (1)
  - Disease progression [Fatal]
